FAERS Safety Report 5377175-3 (Version None)
Quarter: 2007Q3

REPORT INFORMATION
  Report Type: 
  Country: None (occurrence: None)
  Receive Date: 20070703
  Receipt Date: 20070625
  Transmission Date: 20080115
  Serious: Yes (Hospitalization)
  Sender: FDA-Public Use
  Company Number: US-ELI_LILLY_AND_COMPANY-US200706005567

PATIENT
  Age: 67 Year
  Sex: Female

DRUGS (13)
  1. BYETTA [Suspect]
     Indication: TYPE 2 DIABETES MELLITUS
     Dosage: 5 UG, 2/D
     Route: 058
     Dates: start: 20070601, end: 20070609
  2. BYETTA [Suspect]
     Dosage: 5 UG, 2/D
     Route: 058
     Dates: start: 20070623, end: 20070623
  3. BETAPACE [Concomitant]
     Dosage: UNK, 2/D
     Route: 048
  4. SYNTHROID [Concomitant]
     Dosage: UNK, UNKNOWN
     Route: 048
  5. PLAVIX [Concomitant]
     Indication: ANTICOAGULANT THERAPY
     Dosage: UNK, UNKNOWN
     Route: 065
  6. ATACAND [Concomitant]
     Dosage: UNK, UNKNOWN
     Route: 048
  7. ASPIRIN [Concomitant]
     Dosage: 81 MG, UNKNOWN
     Route: 048
  8. GLIPIZIDE [Concomitant]
     Indication: TYPE 2 DIABETES MELLITUS
     Dosage: UNK, 2/D
     Route: 048
  9. CARDIZEM [Concomitant]
     Dosage: UNK, UNKNOWN
     Route: 048
  10. IMDUR [Concomitant]
     Dosage: UNK, UNKNOWN
     Route: 048
  11. CRESTOR [Concomitant]
     Indication: BLOOD CHOLESTEROL
     Dosage: UNK, UNKNOWN
     Route: 048
  12. PAXIL [Concomitant]
     Dosage: UNK, UNKNOWN
     Route: 048
  13. DABIGATRAN [Concomitant]
     Dosage: UNK, UNKNOWN
     Route: 048

REACTIONS (5)
  - FATIGUE [None]
  - HEADACHE [None]
  - NAUSEA [None]
  - NON-CARDIAC CHEST PAIN [None]
  - STRESS [None]
